FAERS Safety Report 24745888 (Version 1)
Quarter: 2024Q4

REPORT INFORMATION
  Report Type: Report from Study
  Country: IT (occurrence: IT)
  Receive Date: 20241218
  Receipt Date: 20241218
  Transmission Date: 20250115
  Serious: Yes (Life-Threatening, Other)
  Sender: BRISTOL-MYERS SQUIBB COMPANY
  Company Number: IT-BRISTOL-MYERS SQUIBB COMPANY-2024-193701

PATIENT
  Age: 79 Year
  Sex: Male
  Weight: 73 kg

DRUGS (7)
  1. NIVOLUMAB [Suspect]
     Active Substance: NIVOLUMAB
     Indication: Non-small cell lung cancer
     Dates: start: 20241025, end: 20241115
  2. IPILIMUMAB [Suspect]
     Active Substance: IPILIMUMAB
     Indication: Non-small cell lung cancer
     Dates: start: 20241025, end: 20241025
  3. DIETARY SUPPLEMENT [Concomitant]
     Active Substance: DIETARY SUPPLEMENT
     Indication: Hypercholesterolaemia
     Dates: start: 20110101
  4. ESOMEPRAZOLE [Concomitant]
     Active Substance: ESOMEPRAZOLE
     Indication: Gastrooesophageal reflux disease
     Dates: start: 20230101
  5. DOBETIN TOTALE [CYANOCOBALAMIN;PYRIDOXINE HYDROCHLORIDE;THIAMINE HYDRO [Concomitant]
     Indication: Premedication
     Dosage: DOBETIN TOTALE 1000 IM 5F +5F
     Route: 030
     Dates: start: 20241014
  6. DEXAMETHASONE [Concomitant]
     Active Substance: DEXAMETHASONE
     Indication: Premedication
     Dosage: 64 GTT, 0.2%
     Dates: start: 20241024, end: 20241024
  7. RAMIPRIL [Concomitant]
     Active Substance: RAMIPRIL
     Indication: Hypertension
     Dosage: DOSE:0.5 CAPSULE
     Dates: start: 20050101

REACTIONS (3)
  - Hepatitis [Unknown]
  - Myocarditis [Unknown]
  - Prescribed underdose [Unknown]

NARRATIVE: CASE EVENT DATE: 20241205
